FAERS Safety Report 10501721 (Version 3)
Quarter: 2014Q4

REPORT INFORMATION
  Report Type: Spontaneous
  Country: JP (occurrence: JP)
  Receive Date: 20141007
  Receipt Date: 20141125
  Transmission Date: 20150528
  Serious: Yes (Life-Threatening, Hospitalization, Other)
  Sender: FDA-Public Use
  Company Number: JP-ASTRAZENECA-2014SE58810

PATIENT
  Age: 69 Year
  Sex: Female
  Weight: 37 kg

DRUGS (7)
  1. NEXIUM [Suspect]
     Active Substance: ESOMEPRAZOLE MAGNESIUM
     Indication: PROPHYLAXIS AGAINST GASTROINTESTINAL ULCER
     Route: 048
     Dates: start: 20140724, end: 20140725
  2. AMLODIN [Concomitant]
     Active Substance: AMLODIPINE BESYLATE
     Indication: HYPERTENSION
     Route: 048
     Dates: start: 20140723
  3. THYRADIN S [Concomitant]
     Active Substance: LEVOTHYROXINE SODIUM
     Indication: HYPOTHYROIDISM
     Route: 048
     Dates: start: 20140724
  4. MUCOSTA [Concomitant]
     Active Substance: REBAMIPIDE
     Indication: PROPHYLAXIS AGAINST GASTROINTESTINAL ULCER
     Route: 048
     Dates: start: 20140725
  5. LOXOPROFEN [Concomitant]
     Active Substance: LOXOPROFEN
     Indication: POSTOPERATIVE ANALGESIA
     Route: 048
     Dates: start: 20140724, end: 20140724
  6. ONEALFA [Concomitant]
     Active Substance: ALFACALCIDOL
     Indication: BLOOD CALCIUM DECREASED
     Route: 048
     Dates: start: 20140724
  7. CALCIUM LACTATE [Concomitant]
     Active Substance: CALCIUM LACTATE
     Indication: BLOOD CALCIUM DECREASED
     Route: 048
     Dates: start: 20140724, end: 20140815

REACTIONS (9)
  - Electrocardiogram abnormal [Unknown]
  - Blood pressure increased [Unknown]
  - Depressed level of consciousness [Unknown]
  - Blood corticotrophin increased [Unknown]
  - Hyponatraemia [Recovered/Resolved]
  - Blood calcium decreased [Unknown]
  - Blood cortisol increased [Unknown]
  - Blood antidiuretic hormone increased [Unknown]
  - Urine potassium decreased [Unknown]

NARRATIVE: CASE EVENT DATE: 20140725
